FAERS Safety Report 8788256 (Version 4)
Quarter: 2013Q2

REPORT INFORMATION
  Report Type: Spontaneous
  Country: US (occurrence: US)
  Receive Date: 20120914
  Receipt Date: 20130522
  Transmission Date: 20140414
  Serious: Yes (Other)
  Sender: FDA-Public Use
  Company Number: CHPA2012US002701

PATIENT
  Age: 48 Year
  Sex: Female

DRUGS (3)
  1. EXCEDRIN MIGRAINE [Suspect]
     Indication: MIGRAINE
     Dosage: 1 DF, UNK
     Route: 048
     Dates: end: 20120907
  2. EXCEDRIN MIGRAINE [Suspect]
     Dosage: 2 DF, PRN
     Route: 048
  3. HORMONES [Concomitant]
     Indication: HORMONE THERAPY
     Dosage: UNK
     Route: 048

REACTIONS (6)
  - Blood pressure increased [Recovered/Resolved]
  - Headache [Recovered/Resolved]
  - Malaise [Recovered/Resolved]
  - Migraine [Recovered/Resolved]
  - Drug ineffective [Unknown]
  - Underdose [Unknown]
